FAERS Safety Report 11861804 (Version 3)
Quarter: 2016Q4

REPORT INFORMATION
  Report Type: Spontaneous
  Country: US (occurrence: US)
  Receive Date: 20151222
  Receipt Date: 20161101
  Transmission Date: 20170206
  Serious: No
  Sender: FDA-Public Use
  Company Number: US-CELGENEUS-USA-2015122791

PATIENT
  Age: 63 Year
  Sex: Female

DRUGS (2)
  1. OTEZLA [Suspect]
     Active Substance: APREMILAST
     Indication: PSORIASIS
     Route: 048
     Dates: start: 201506, end: 201603
  2. OTEZLA [Suspect]
     Active Substance: APREMILAST
     Route: 048
     Dates: start: 201608

REACTIONS (3)
  - Nausea [Recovering/Resolving]
  - Decreased appetite [Recovered/Resolved with Sequelae]
  - Drug ineffective [Recovered/Resolved]

NARRATIVE: CASE EVENT DATE: 201506
